FAERS Safety Report 8038403-9 (Version None)
Quarter: 2012Q1

REPORT INFORMATION
  Report Type: 
  Country: None (occurrence: None)
  Receive Date: 20120111
  Receipt Date: 20111212
  Transmission Date: 20120608
  Serious: No
  Sender: FDA-Public Use
  Company Number: US-AMGEN-USASP2011058994

PATIENT
  Age: 72 Year
  Sex: Male

DRUGS (4)
  1. ENBREL [Suspect]
     Indication: RHEUMATOID ARTHRITIS
     Dosage: 50 MG, QWK
     Route: 058
     Dates: start: 20110823
  2. PREDNISONE TAB [Concomitant]
     Dosage: 10 MG, TWO TABLETS (20 MG) BT ORAL ROUTE EVERY DAY
     Route: 048
  3. FOLIC ACID [Concomitant]
     Dosage: 1 MG, QD
     Route: 048
  4. TREXALL [Concomitant]
     Dosage: 2.5 MG 10 TABLETS ORALLY WEEKLY
     Route: 048
     Dates: start: 20090101

REACTIONS (4)
  - ARTHRALGIA [None]
  - OVERDOSE [None]
  - MUSCULAR WEAKNESS [None]
  - PAIN IN EXTREMITY [None]
